FAERS Safety Report 10086630 (Version 3)
Quarter: 2014Q2

REPORT INFORMATION
  Report Type: Spontaneous
  Country: US (occurrence: US)
  Receive Date: 20140418
  Receipt Date: 20140609
  Transmission Date: 20141212
  Serious: Yes (Hospitalization)
  Sender: FDA-Public Use
  Company Number: US-PFIZER INC-2014108273

PATIENT
  Age: 41 Year
  Sex: Female
  Weight: 79.82 kg

DRUGS (10)
  1. XELJANZ [Suspect]
     Indication: RHEUMATOID ARTHRITIS
     Dosage: 5 MG, 2X/DAY
     Route: 048
     Dates: start: 20131125, end: 20140130
  2. PREDNISONE [Concomitant]
     Dosage: 5 MG 1-2 PILLS, DAILY AS NEEDED WITH FOOD
     Route: 048
  3. PREDNISONE [Concomitant]
     Dosage: 1 MG 4 PILLS QAM WITH FOOD
  4. NORCO [Concomitant]
     Dosage: UNK
  5. NAPROXEN [Concomitant]
     Dosage: 500 MG 1 PILL, 2X/DAY WITH FOOD
  6. ATENOLOL [Concomitant]
     Dosage: 50 MG 1 TABLET, ALTERNATE DAY
     Route: 048
  7. ALPRAZOLAM [Concomitant]
     Dosage: 0.5 MG, ONE PILL AT BEDTIME AS NEEDED
  8. ACYCLOVIR [Concomitant]
     Dosage: 800 MG 1 TABLET, 5 TIMES A DAY PRN
     Route: 048
  9. METHOTREXATE SODIUM [Concomitant]
     Dosage: 2.5MG 6 PILLS ONCE A WEEK
     Route: 048
  10. ACETAMINOPHEN W/HYDROCODONE BITARTRATE [Concomitant]
     Dosage: HYDROCODONE BITARTRATE 5MG/ PARACETAMOL 325MG, 1-2 PILLS 3 TIMES A DAY PRN

REACTIONS (1)
  - Pancreatitis [Recovered/Resolved]
